FAERS Safety Report 9694207 (Version 2)
Quarter: 2013Q4

REPORT INFORMATION
  Report Type: Spontaneous
  Country: US (occurrence: US)
  Receive Date: 20131118
  Receipt Date: 20131126
  Transmission Date: 20140711
  Serious: Yes (Other)
  Sender: FDA-Public Use
  Company Number: US-B.I. PHARMACEUTICALS,INC./RIDGEFIELD-2013-BI-37334BP

PATIENT
  Age: 74 Year
  Sex: Female
  Weight: 70.11 kg

DRUGS (1)
  1. SPIRIVA [Suspect]
     Indication: CHRONIC OBSTRUCTIVE PULMONARY DISEASE
     Dosage: 18 MCG
     Route: 055
     Dates: start: 20120511

REACTIONS (2)
  - Lung neoplasm malignant [Not Recovered/Not Resolved]
  - Product quality issue [Not Recovered/Not Resolved]
